FAERS Safety Report 8296231-3 (Version None)
Quarter: 2012Q2

REPORT INFORMATION
  Report Type: 
  Country: None (occurrence: None)
  Receive Date: 20120418
  Receipt Date: 20120416
  Transmission Date: 20120825
  Serious: Yes (Death, Other)
  Sender: FDA-Public Use
  Company Number: PHHY2011DK96773

PATIENT
  Sex: Female
  Weight: 54 kg

DRUGS (2)
  1. PRIMCILLIN [Concomitant]
     Indication: LUNG INFECTION
     Dosage: 800 MG, TID
     Route: 048
     Dates: start: 20111020
  2. LEVONORGESTREL AND ETHINYL ESTRADIOL [Suspect]
     Indication: ORAL CONTRACEPTION
     Dosage: UNK
     Route: 048
     Dates: start: 20110819

REACTIONS (13)
  - DYSPNOEA [None]
  - THROMBOSIS [None]
  - PYREXIA [None]
  - VENTRICULAR HYPERTROPHY [None]
  - PULMONARY ARTERY THROMBOSIS [None]
  - PNEUMONIA [None]
  - COUGH [None]
  - TACHYCARDIA [None]
  - RHONCHI [None]
  - LIVER DISORDER [None]
  - FLUID RETENTION [None]
  - MALAISE [None]
  - PULMONARY EMBOLISM [None]
